FAERS Safety Report 5818137-9 (Version None)
Quarter: 2008Q3

REPORT INFORMATION
  Report Type: 
  Country: None (occurrence: None)
  Receive Date: 20080722
  Receipt Date: 20070928
  Transmission Date: 20090109
  Serious: No
  Sender: FDA-Public Use
  Company Number: US-BAYER-US-2007-037007

PATIENT
  Age: 48 Year
  Sex: Female
  Weight: 82 kg

DRUGS (11)
  1. MAGNEVIST [Suspect]
     Indication: NUCLEAR MAGNETIC RESONANCE IMAGING BRAIN
     Dosage: TOTAL DAILY DOSE: 16.3 ML
     Route: 042
     Dates: start: 20070927, end: 20070927
  2. PROZAC [Concomitant]
  3. LORAZEPAM [Concomitant]
  4. TRAZODONE HCL [Concomitant]
  5. AMBIEN [Concomitant]
  6. REBIF /NET/ [Concomitant]
  7. BACLOFEN [Concomitant]
  8. DITROPAN /USA/ [Concomitant]
  9. CLONAZEPAM [Concomitant]
  10. PROVIGIL [Concomitant]
  11. PREGABALIN [Concomitant]

REACTIONS (4)
  - LACRIMATION INCREASED [None]
  - PRURITUS [None]
  - SNEEZING [None]
  - URTICARIA [None]
